FAERS Safety Report 9166659 (Version 3)
Quarter: 2013Q2

REPORT INFORMATION
  Report Type: Spontaneous
  Country: DE (occurrence: DE)
  Receive Date: 20130315
  Receipt Date: 20130509
  Transmission Date: 20140414
  Serious: No
  Sender: FDA-Public Use
  Company Number: DE-ABBOTT-13P-062-1064226-00

PATIENT
  Sex: Male

DRUGS (1)
  1. TESTOGEL [Suspect]
     Indication: ANDROGEN DEFICIENCY
     Route: 062

REACTIONS (2)
  - Blood testosterone abnormal [Unknown]
  - Drug dose omission [Unknown]
